FAERS Safety Report 6092189-6 (Version None)
Quarter: 2009Q1

REPORT INFORMATION
  Report Type: 
  Country: None (occurrence: None)
  Receive Date: 20090219
  Receipt Date: 20081021
  Transmission Date: 20090719
  Serious: No
  Sender: FDA-Public Use
  Company Number: WAES 0810USA00529

PATIENT
  Age: 53 Year
  Sex: Male
  Weight: 97.0698 kg

DRUGS (1)
  1. JANUVIA [Suspect]
     Indication: TYPE 2 DIABETES MELLITUS
     Dosage: 100 MG/DAILY/PO
     Route: 048
     Dates: start: 20080930, end: 20081002

REACTIONS (3)
  - PHARYNGEAL OEDEMA [None]
  - RASH PRURITIC [None]
  - URTICARIA [None]
